FAERS Safety Report 10076820 (Version 1)
Quarter: 2014Q2

REPORT INFORMATION
  Report Type: Spontaneous
  Country: PL (occurrence: PL)
  Receive Date: 20140414
  Receipt Date: 20140414
  Transmission Date: 20141212
  Serious: Yes (Hospitalization)
  Sender: FDA-Public Use
  Company Number: PL-UCBSA-117452

PATIENT
  Age: 43 Year
  Sex: Female
  Weight: 65 kg

DRUGS (2)
  1. CIMZIA [Suspect]
     Indication: RHEUMATOID ARTHRITIS
     Dosage: 200 MG/ML, 20 DOSES
     Route: 058
     Dates: start: 20130719, end: 20140225
  2. MTX [Concomitant]
     Dosage: DOSE PER INTAKE: 15 MG

REACTIONS (1)
  - Pulmonary tuberculosis [Not Recovered/Not Resolved]
